FAERS Safety Report 8166102-1 (Version None)
Quarter: 2012Q1

REPORT INFORMATION
  Report Type: 
  Country: None (occurrence: None)
  Receive Date: 20120227
  Receipt Date: 20110406
  Transmission Date: 20120608
  Serious: No
  Sender: FDA-Public Use
  Company Number: US-MYLANLABS-2011S1005821

PATIENT
  Age: 20 Year
  Sex: Male
  Weight: 58.97 kg

DRUGS (3)
  1. ACLOVATE [Concomitant]
     Dosage: PRN
  2. TAC [Concomitant]
     Dosage: PRN
  3. AMNESTEEM [Suspect]
     Indication: ACNE CYSTIC
     Dates: start: 20101228, end: 20110131

REACTIONS (1)
  - HEPATIC ENZYME INCREASED [None]
